FAERS Safety Report 11870946 (Version 1)
Quarter: 2015Q4

REPORT INFORMATION
  Report Type: Spontaneous
  Country: US (occurrence: US)
  Receive Date: 20151228
  Receipt Date: 20151228
  Transmission Date: 20160305
  Serious: No
  Sender: FDA-Public Use
  Company Number: US-BAYER-2015-494655

PATIENT
  Age: 61 Year
  Sex: Male
  Weight: 72.56 kg

DRUGS (6)
  1. ALEVE [Suspect]
     Active Substance: NAPROXEN SODIUM
     Indication: HEADACHE
  2. ALEVE [Suspect]
     Active Substance: NAPROXEN SODIUM
     Indication: BACK PAIN
  3. ALEVE [Suspect]
     Active Substance: NAPROXEN SODIUM
     Indication: TOOTHACHE
  4. ALEVE [Suspect]
     Active Substance: NAPROXEN SODIUM
     Indication: ARTHRALGIA
  5. ALEVE [Suspect]
     Active Substance: NAPROXEN SODIUM
     Indication: ANALGESIC THERAPY
     Dosage: 2 DF, QID
     Route: 048
     Dates: start: 2007
  6. BENADRYL [Concomitant]
     Active Substance: DIPHENHYDRAMINE HYDROCHLORIDE
     Dosage: UNK, QID, 3-4 TIMES A WEEK

REACTIONS (2)
  - Product use issue [None]
  - Therapeutic response unexpected [None]
